FAERS Safety Report 15186435 (Version 1)
Quarter: 2018Q3

REPORT INFORMATION
  Report Type: Report from Study
  Country: US (occurrence: US)
  Receive Date: 20180723
  Receipt Date: 20180723
  Transmission Date: 20181010
  Serious: No
  Sender: FDA-Public Use
  Company Number: US-EXELIXIS-CABO-18013430

PATIENT
  Sex: Male
  Weight: 99.77 kg

DRUGS (5)
  1. SIMVASTATIN. [Concomitant]
     Active Substance: SIMVASTATIN
  2. NITRO?DUR [Concomitant]
     Active Substance: NITROGLYCERIN
  3. CABOMETYX [Suspect]
     Active Substance: CABOZANTINIB S-MALATE
     Indication: RENAL CELL CARCINOMA
     Dosage: 60 MG, QD
     Route: 048
     Dates: start: 20180308
  4. LISINOPRIL. [Concomitant]
     Active Substance: LISINOPRIL
  5. ASPIR 81 [Concomitant]

REACTIONS (2)
  - Pain [Unknown]
  - Dysgeusia [Unknown]
